FAERS Safety Report 9213249 (Version 2)
Quarter: 2013Q4

REPORT INFORMATION
  Report Type: Spontaneous
  Country: US (occurrence: US)
  Receive Date: 20130405
  Receipt Date: 20131028
  Transmission Date: 20140711
  Serious: Yes (Hospitalization, Other)
  Sender: FDA-Public Use
  Company Number: US-JNJFOC-20130304311

PATIENT
  Age: 10 Year
  Sex: Male

DRUGS (8)
  1. TOPIRAMATE [Suspect]
     Indication: MYOCLONIC EPILEPSY
     Route: 048
     Dates: start: 201207, end: 2013
  2. TOPIRAMATE [Suspect]
     Indication: ATONIC SEIZURES
     Route: 048
     Dates: start: 201207, end: 2013
  3. VALPROIC ACID [Suspect]
     Indication: MYOCLONIC EPILEPSY
     Route: 065
     Dates: end: 2013
  4. VALPROIC ACID [Suspect]
     Indication: ATONIC SEIZURES
     Route: 065
     Dates: end: 2013
  5. CLOBAZAM [Suspect]
     Indication: MYOCLONIC EPILEPSY
     Route: 065
     Dates: start: 201301, end: 20130128
  6. CLOBAZAM [Suspect]
     Indication: ATONIC SEIZURES
     Route: 065
     Dates: start: 201301, end: 20130128
  7. AMOXICILLIN [Suspect]
     Indication: PHARYNGITIS STREPTOCOCCAL
     Route: 065
     Dates: start: 201301, end: 2013
  8. TRANXENE [Concomitant]
     Indication: PRODUCT USED FOR UNKNOWN INDICATION
     Route: 065
     Dates: start: 201212

REACTIONS (5)
  - Stevens-Johnson syndrome [Recovered/Resolved]
  - Pharyngitis streptococcal [Recovered/Resolved]
  - Lobar pneumonia [Recovered/Resolved]
  - Food intolerance [Recovered/Resolved]
  - Diarrhoea [Recovered/Resolved]
